FAERS Safety Report 19813229 (Version 1)
Quarter: 2021Q3

REPORT INFORMATION
  Report Type: Report from Study
  Country: US (occurrence: US)
  Receive Date: 20210910
  Receipt Date: 20210910
  Transmission Date: 20211014
  Serious: Yes (Hospitalization, Other)
  Sender: FDA-Public Use
  Company Number: US-ASTRAZENECA-2021A712307

PATIENT
  Sex: Male

DRUGS (15)
  1. CALQUENCE [Suspect]
     Active Substance: ACALABRUTINIB
     Indication: CHRONIC MYELOID LEUKAEMIA
     Route: 048
  2. FLUTICASONE. [Concomitant]
     Active Substance: FLUTICASONE
  3. FINASTERIDE. [Concomitant]
     Active Substance: FINASTERIDE
  4. FISH OIL [Concomitant]
     Active Substance: FISH OIL
  5. AMLODIPINE [Concomitant]
     Active Substance: AMLODIPINE BESYLATE
  6. METFORMIN HCL [Concomitant]
     Active Substance: METFORMIN HYDROCHLORIDE
  7. CLARITIN [Concomitant]
     Active Substance: LORATADINE
  8. TRAJENTA [Concomitant]
     Active Substance: LINAGLIPTIN
  9. CARVEDILOL. [Concomitant]
     Active Substance: CARVEDILOL
  10. IBUPROFEN. [Concomitant]
     Active Substance: IBUPROFEN
  11. PRAVASTATIN. [Concomitant]
     Active Substance: PRAVASTATIN
  12. COENZYME Q10 [Concomitant]
     Active Substance: DIETARY SUPPLEMENT\UBIDECARENONE
  13. VALSARTAN. [Concomitant]
     Active Substance: VALSARTAN
  14. FENOFIBRATE. [Concomitant]
     Active Substance: FENOFIBRATE
  15. GABAPENTIN. [Concomitant]
     Active Substance: GABAPENTIN

REACTIONS (1)
  - Immunosuppression [Not Recovered/Not Resolved]
